FAERS Safety Report 13976036 (Version 2)
Quarter: 2017Q4

REPORT INFORMATION
  Report Type: Spontaneous
  Country: US (occurrence: US)
  Receive Date: 20170914
  Receipt Date: 20171101
  Transmission Date: 20180321
  Serious: Yes (Other)
  Sender: FDA-Public Use
  Company Number: US-ASTELLAS-2017US033132

PATIENT
  Sex: Male

DRUGS (2)
  1. XTANDI [Suspect]
     Active Substance: ENZALUTAMIDE
     Indication: MALIGNANT NEOPLASM OF AURICULAR CARTILAGE
     Route: 065
  2. XTANDI [Suspect]
     Active Substance: ENZALUTAMIDE
     Indication: BONE CANCER
     Route: 065

REACTIONS (5)
  - Constipation [Unknown]
  - Off label use [Unknown]
  - Overdose [Unknown]
  - Back pain [Unknown]
  - Neoplasm malignant [Unknown]
